FAERS Safety Report 12808537 (Version 1)
Quarter: 2016Q4

REPORT INFORMATION
  Report Type: Spontaneous
  Country: FR (occurrence: FR)
  Receive Date: 20161004
  Receipt Date: 20161004
  Transmission Date: 20170207
  Serious: Yes (Other)
  Sender: FDA-Public Use
  Company Number: FR-MYLANLABS-2016M1042404

PATIENT

DRUGS (6)
  1. NEBIVOLOL. [Concomitant]
     Active Substance: NEBIVOLOL
     Indication: PRODUCT USED FOR UNKNOWN INDICATION
  2. MYLAN-RISPERIDONE [Suspect]
     Active Substance: RISPERIDONE
     Indication: PRODUCT USED FOR UNKNOWN INDICATION
     Dosage: UNK
     Dates: start: 2013, end: 2014
  3. DOLIPRANE [Concomitant]
     Active Substance: ACETAMINOPHEN
     Indication: PAIN IN EXTREMITY
  4. KARDEGIC [Concomitant]
     Active Substance: ASPIRIN LYSINE
     Indication: CARDIAC DISORDER
  5. PERMIXON [Concomitant]
     Active Substance: SAW PALMETTO
     Indication: PROSTATIC DISORDER
  6. SEROPLEX [Suspect]
     Active Substance: ESCITALOPRAM OXALATE
     Indication: DEPRESSION
     Dosage: UNK
     Dates: start: 201301, end: 201312

REACTIONS (22)
  - Pruritus [Unknown]
  - Abdominal distension [Unknown]
  - Tremor [Unknown]
  - Paraesthesia [Unknown]
  - Dry mouth [Unknown]
  - Gynaecomastia [Unknown]
  - Tinnitus [Unknown]
  - Insomnia [Unknown]
  - Acne [Unknown]
  - Abnormal dreams [Unknown]
  - Suicidal ideation [Unknown]
  - Dyspepsia [Unknown]
  - Decreased appetite [Unknown]
  - Nightmare [Unknown]
  - Diarrhoea [Unknown]
  - Erectile dysfunction [Unknown]
  - Nausea [Unknown]
  - Throat irritation [Unknown]
  - Rash [Unknown]
  - Dizziness [Unknown]
  - Breast swelling [Unknown]
  - Weight decreased [Unknown]

NARRATIVE: CASE EVENT DATE: 2014
